FAERS Safety Report 20450059 (Version 1)
Quarter: 2022Q1

REPORT INFORMATION
  Report Type: Spontaneous
  Country: US (occurrence: US)
  Receive Date: 20220209
  Receipt Date: 20220209
  Transmission Date: 20220424
  Serious: No
  Sender: FDA-Public Use
  Company Number: US-BAYER-2022A018048

PATIENT
  Age: 20 Year
  Sex: Female

DRUGS (1)
  1. SKYLA [Suspect]
     Active Substance: LEVONORGESTREL
     Dosage: 14?G/DAY
     Route: 015
     Dates: start: 20211102, end: 20220201

REACTIONS (4)
  - Device issue [None]
  - Device expulsion [Recovered/Resolved]
  - Device use error [None]
  - Medical device pain [None]

NARRATIVE: CASE EVENT DATE: 20211102
